FAERS Safety Report 20561530 (Version 2)
Quarter: 2022Q2

REPORT INFORMATION
  Report Type: Report from Study
  Country: TH (occurrence: None)
  Receive Date: 20220307
  Receipt Date: 20220506
  Transmission Date: 20220721
  Serious: Yes (Hospitalization)
  Sender: FDA-Public Use
  Company Number: TH-Eisai Medical Research-EC-2022-109653

PATIENT
  Age: 73 Year
  Sex: Female

DRUGS (1)
  1. HALAVEN [Suspect]
     Active Substance: ERIBULIN MESYLATE
     Indication: Breast cancer metastatic
     Route: 042
     Dates: start: 20220129

REACTIONS (4)
  - Pyrexia [Recovering/Resolving]
  - Thrombocytopenia [Recovered/Resolved]
  - Sepsis [Recovering/Resolving]
  - Breast ulceration [Recovering/Resolving]

NARRATIVE: CASE EVENT DATE: 20220215
